FAERS Safety Report 4998491-0 (Version None)
Quarter: 2006Q2

REPORT INFORMATION
  Report Type: 
  Country: None (occurrence: None)
  Receive Date: 20060508
  Receipt Date: 20060424
  Transmission Date: 20061013
  Serious: Yes (Other)
  Sender: FDA-Public Use
  Company Number: 2005033164

PATIENT
  Age: 34 Year
  Sex: Female
  Weight: 49.6 kg

DRUGS (1)
  1. DOSTINEX [Suspect]
     Indication: HYPERPROLACTINAEMIA
     Dosage: 0.5 MG (0.25 MG, 2 IN 1 WK), ORAL
     Route: 048
     Dates: start: 20040210, end: 20040306

REACTIONS (4)
  - BLOOD FOLLICLE STIMULATING HORMONE INCREASED [None]
  - DERMATITIS ACNEIFORM [None]
  - DRUG ERUPTION [None]
  - SECRETORY ADENOMA OF PITUITARY [None]
